FAERS Safety Report 17502926 (Version 1)
Quarter: 2020Q1

REPORT INFORMATION
  Report Type: Spontaneous
  Country: US (occurrence: US)
  Receive Date: 20200305
  Receipt Date: 20200305
  Transmission Date: 20200409
  Serious: No
  Sender: FDA-Public Use
  Company Number: US-ROCHE-2263667

PATIENT
  Age: 21 Year

DRUGS (1)
  1. XOLAIR [Suspect]
     Active Substance: OMALIZUMAB
     Indication: PRODUCT USED FOR UNKNOWN INDICATION
     Dosage: PFS SOLUTION
     Route: 058
     Dates: start: 201503

REACTIONS (4)
  - Syringe issue [Unknown]
  - Pain [Unknown]
  - Needle issue [Unknown]
  - Product quality issue [Unknown]
